FAERS Safety Report 13168090 (Version 1)
Quarter: 2017Q1

REPORT INFORMATION
  Report Type: Other
  Country: US (occurrence: US)
  Receive Date: 20170131
  Receipt Date: 20170131
  Transmission Date: 20170428
  Serious: Yes (Hospitalization, Other)
  Sender: FDA-Public Use
  Company Number: US-ALSI-201700027

PATIENT
  Age: 52 Year
  Sex: Female
  Weight: 96 kg

DRUGS (10)
  1. LIDOCAINE. [Suspect]
     Active Substance: LIDOCAINE
  2. FENTANYL. [Suspect]
     Active Substance: FENTANYL
  3. DESFLURANE. [Suspect]
     Active Substance: DESFLURANE
  4. HYDROMORPHONE HCL [Suspect]
     Active Substance: HYDROMORPHONE HYDROCHLORIDE
  5. GLYCOPYRROLATE. [Suspect]
     Active Substance: GLYCOPYRROLATE
  6. PROPOFOL. [Suspect]
     Active Substance: PROPOFOL
  7. NEOSTIGMINE METHYLSULFATE. [Suspect]
     Active Substance: NEOSTIGMINE METHYLSULFATE
  8. OXYGEN. [Concomitant]
     Active Substance: OXYGEN
  9. NITROUS OXIDE. [Suspect]
     Active Substance: NITROUS OXIDE
     Indication: MAINTENANCE OF ANAESTHESIA
  10. VECURONIUM [Suspect]
     Active Substance: VECURONIUM BROMIDE

REACTIONS (1)
  - Hemiplegic migraine [None]
